FAERS Safety Report 10184668 (Version 1)
Quarter: 2014Q2

REPORT INFORMATION
  Report Type: Spontaneous
  Country: BR (occurrence: BR)
  Receive Date: 20140521
  Receipt Date: 20140521
  Transmission Date: 20141212
  Serious: Yes (Other)
  Sender: FDA-Public Use
  Company Number: BR-AMGEN INC.-BRASP2014037107

PATIENT
  Age: 60 Year
  Sex: Female
  Weight: 59 kg

DRUGS (4)
  1. ENBREL [Suspect]
     Indication: RHEUMATOID ARTHRITIS
     Dosage: 50 MG, 1X/WEEK
     Route: 058
     Dates: start: 201105
  2. METHOTREXATE [Concomitant]
     Dosage: 1X/WEEK
  3. PREDNISONE [Concomitant]
     Dosage: 1 UNIT OF 5 MG, 1X/DAY
  4. CHLOROQUINE [Concomitant]
     Dosage: 3X/WEEK

REACTIONS (2)
  - Neoplasm [Unknown]
  - Pain [Unknown]
